FAERS Safety Report 15918595 (Version 1)
Quarter: 2019Q1

REPORT INFORMATION
  Report Type: Spontaneous
  Country: CN (occurrence: CN)
  Receive Date: 20190205
  Receipt Date: 20190205
  Transmission Date: 20190417
  Serious: Yes (Other)
  Sender: FDA-Public Use
  Company Number: CN-ASTRAZENECA-2019SE20449

PATIENT
  Age: 12832 Day
  Sex: Female
  Weight: 62 kg

DRUGS (1)
  1. BUDESONIDE. [Suspect]
     Active Substance: BUDESONIDE
     Indication: PHARYNGITIS
     Route: 055
     Dates: start: 20181119, end: 20181119

REACTIONS (3)
  - Chest discomfort [Recovering/Resolving]
  - Dermatosis [Recovering/Resolving]
  - Urticaria [Recovering/Resolving]

NARRATIVE: CASE EVENT DATE: 20181119
